FAERS Safety Report 4421848-3 (Version None)
Quarter: 2004Q3

REPORT INFORMATION
  Report Type: 
  Country: None (occurrence: None)
  Receive Date: 20040806
  Receipt Date: 20040720
  Transmission Date: 20050211
  Serious: Yes (Congenital Anomaly)
  Sender: FDA-Public Use
  Company Number: FR_040704475

PATIENT
  Sex: Male

DRUGS (1)
  1. ZYPREXA [Suspect]
     Dates: start: 20020628, end: 20020928

REACTIONS (7)
  - CALCINOSIS [None]
  - CEREBRAL DISORDER [None]
  - CEREBRAL PALSY [None]
  - CONGENITAL VARICELLA INFECTION [None]
  - DRUG EXPOSURE DURING PREGNANCY [None]
  - NEONATAL DISORDER [None]
  - RETINITIS [None]
